FAERS Safety Report 7859140-7 (Version None)
Quarter: 2011Q4

REPORT INFORMATION
  Report Type: 
  Country: None (occurrence: None)
  Receive Date: 20111027
  Receipt Date: 20111017
  Transmission Date: 20120403
  Serious: Yes (Life-Threatening, Hospitalization, Other)
  Sender: FDA-Public Use
  Company Number: PHFR2011GB05479

PATIENT
  Sex: Male
  Weight: 81.7 kg

DRUGS (8)
  1. DEKRISTOL [Concomitant]
     Indication: VITAMIN D DECREASED
     Dosage: 2 DF, EVERY 4/52
     Route: 048
     Dates: start: 20110427
  2. CLOZARIL [Suspect]
     Indication: SCHIZOPHRENIA, PARANOID TYPE
     Dosage: 325 MG/ DAY
     Route: 048
     Dates: start: 20101029, end: 20110927
  3. SIMVASTATIN [Concomitant]
     Indication: BLOOD CHOLESTEROL INCREASED
     Dosage: 40 MG/DAY
     Route: 048
     Dates: start: 20110228
  4. FERROUS SULFATE TAB [Concomitant]
     Indication: IRON DEFICIENCY ANAEMIA
     Dosage: 200 MG, TID
     Route: 048
     Dates: start: 20110916, end: 20110927
  5. TAMSULOSIN HYDROCHLORIDE [Concomitant]
     Indication: URINARY TRACT DISORDER
     Dosage: 400 UG/ DAY
     Route: 048
     Dates: start: 20110228
  6. OMEPRAZOLE [Concomitant]
     Indication: GASTROOESOPHAGEAL REFLUX DISEASE
     Dosage: 10 MG, BID
     Route: 048
     Dates: start: 20110811
  7. HYOSCINE HYDROBROMIDE [Concomitant]
     Indication: SALIVARY HYPERSECRETION
     Dosage: 300 UG, TID
     Route: 048
     Dates: start: 20110228, end: 20110927
  8. ESCITALOPRAM [Concomitant]
     Indication: DEPRESSION
     Dosage: 10 MG/ DAY
     Route: 048
     Dates: start: 20110228, end: 20110927

REACTIONS (12)
  - C-REACTIVE PROTEIN INCREASED [None]
  - NEUROLEPTIC MALIGNANT SYNDROME [None]
  - BLOOD CREATINE PHOSPHOKINASE INCREASED [None]
  - PYREXIA [None]
  - NEUTROPENIA [None]
  - SEPSIS [None]
  - FALL [None]
  - GAIT DISTURBANCE [None]
  - GENERAL PHYSICAL HEALTH DETERIORATION [None]
  - DISORIENTATION [None]
  - CONFUSIONAL STATE [None]
  - ANAEMIA [None]
